FAERS Safety Report 9347959 (Version 1)
Quarter: 2013Q2

REPORT INFORMATION
  Report Type: Spontaneous
  Country: GB (occurrence: GB)
  Receive Date: 20130614
  Receipt Date: 20130614
  Transmission Date: 20140414
  Serious: Yes (Hospitalization, Disabling, Other)
  Sender: FDA-Public Use
  Company Number: GB-JNJFOC-20130522781

PATIENT
  Age: 59 Year
  Sex: Female
  Weight: 99.6 kg

DRUGS (65)
  1. DOXORUBICIN [Suspect]
     Indication: B-CELL LYMPHOMA
     Route: 042
     Dates: start: 20120312
  2. DOXORUBICIN [Suspect]
     Indication: B-CELL LYMPHOMA
     Route: 042
     Dates: start: 20120614
  3. CYCLOPHOSPHAMIDE [Suspect]
     Indication: B-CELL LYMPHOMA
     Route: 042
     Dates: start: 20120312
  4. CYCLOPHOSPHAMIDE [Suspect]
     Indication: B-CELL LYMPHOMA
     Route: 042
     Dates: start: 20120614
  5. PREDNISONE [Suspect]
     Indication: B-CELL LYMPHOMA
     Route: 048
     Dates: start: 20120614
  6. PREDNISONE [Suspect]
     Indication: B-CELL LYMPHOMA
     Route: 048
     Dates: start: 20130312
  7. VINCRISTINE SULFATE [Suspect]
     Indication: B-CELL LYMPHOMA
     Route: 040
     Dates: start: 20120614
  8. VINCRISTINE SULFATE [Suspect]
     Indication: B-CELL LYMPHOMA
     Route: 040
     Dates: start: 20120312
  9. OBINUTUZUMAB [Suspect]
     Indication: B-CELL LYMPHOMA
     Route: 042
     Dates: start: 20120312
  10. OBINUTUZUMAB [Suspect]
     Indication: B-CELL LYMPHOMA
     Route: 042
     Dates: start: 20120614
  11. PHOSPHATE-SANDOZ [Concomitant]
     Indication: PRODUCT USED FOR UNKNOWN INDICATION
     Route: 065
  12. SPIRONOLACTONE [Concomitant]
     Indication: OEDEMA
     Route: 065
     Dates: start: 20120730, end: 20120803
  13. HYDROCORTISONE [Concomitant]
     Indication: PRODUCT USED FOR UNKNOWN INDICATION
     Route: 065
     Dates: start: 20120708
  14. HORMONIN [Concomitant]
     Indication: MENOPAUSAL SYMPTOMS
     Route: 065
  15. FUROSEMIDE [Concomitant]
     Indication: OEDEMA
     Route: 065
     Dates: start: 20120724, end: 20120724
  16. CYCLIZINE [Concomitant]
     Indication: NAUSEA
     Route: 065
     Dates: start: 20120604
  17. GLUCOSE [Concomitant]
     Indication: BLOOD GLUCOSE DECREASED
     Route: 065
     Dates: start: 20120801, end: 20120801
  18. AMBISOME [Concomitant]
     Indication: PRODUCT USED FOR UNKNOWN INDICATION
     Route: 065
     Dates: start: 20120713, end: 20120713
  19. ALLOPURINOL [Concomitant]
     Indication: PRODUCT USED FOR UNKNOWN INDICATION
     Route: 065
     Dates: start: 20120309
  20. ACICLOVIR [Concomitant]
     Indication: PRODUCT USED FOR UNKNOWN INDICATION
     Route: 065
     Dates: start: 20120711, end: 20120727
  21. AMILORIDE [Concomitant]
     Indication: FLUID RETENTION
     Route: 065
     Dates: start: 20120713, end: 20120817
  22. CALCIUM GLUCONATE [Concomitant]
     Indication: BLOOD CALCIUM DECREASED
     Route: 065
     Dates: start: 20120722, end: 20120722
  23. CANESTEN [Concomitant]
     Indication: CANDIDA INFECTION
     Route: 065
     Dates: start: 20120708, end: 20120726
  24. CHLORHEXIDINE [Concomitant]
     Indication: MUCOSAL INFLAMMATION
     Route: 065
     Dates: start: 20120711, end: 20120727
  25. CHLORPHENAMINE [Concomitant]
     Indication: ERYTHEMA
     Route: 065
     Dates: start: 20120714
  26. CIPROFLOXACIN [Concomitant]
     Indication: INFECTION
     Route: 065
     Dates: start: 20120815, end: 20120910
  27. CO-AMOXICLAV [Concomitant]
     Indication: URINARY TRACT INFECTION
     Route: 065
     Dates: start: 20120827, end: 20120831
  28. CO-CODAMOL [Concomitant]
     Indication: OSTEOARTHRITIS
     Route: 065
  29. CORSODYL [Concomitant]
     Indication: PRODUCT USED FOR UNKNOWN INDICATION
     Route: 065
     Dates: start: 20120625, end: 20120627
  30. DEXAMETHASONE [Concomitant]
     Indication: PRODUCT USED FOR UNKNOWN INDICATION
     Route: 065
     Dates: start: 20120702, end: 20120702
  31. DOMPERIDONE [Concomitant]
     Indication: NAUSEA
     Route: 065
     Dates: start: 20120312
  32. ENOXAPARIN [Concomitant]
     Indication: INFECTION
     Route: 065
     Dates: start: 20120629, end: 20120714
  33. FERROUS SULPHATE [Concomitant]
     Indication: ANAEMIA
     Route: 065
     Dates: start: 20120626, end: 20120711
  34. FILGRASTIM [Concomitant]
     Indication: NEUTROPENIA
     Route: 065
     Dates: start: 20120712, end: 20120712
  35. FLUCLOXACILLIN [Concomitant]
     Indication: PRODUCT USED FOR UNKNOWN INDICATION
     Route: 065
     Dates: start: 20120609, end: 20120825
  36. FOLIC ACID [Concomitant]
     Indication: PRODUCT USED FOR UNKNOWN INDICATION
     Route: 065
     Dates: start: 20120624, end: 20120704
  37. GELOFUSINE [Concomitant]
     Indication: PRODUCT USED FOR UNKNOWN INDICATION
     Route: 065
  38. GRANULOCYTE MACROPHAGE COLONY STIM FACTOR [Concomitant]
     Indication: NEUTROPENIA
     Route: 065
     Dates: start: 20120712, end: 20120712
  39. HUMAN ACTRAPID [Concomitant]
     Indication: BLOOD GLUCOSE INCREASED
     Route: 065
     Dates: start: 20120727, end: 20120727
  40. LANSOPRAZOLE [Concomitant]
     Indication: HIATUS HERNIA
     Route: 065
  41. LEVOMEPROMAZINE [Concomitant]
     Indication: ANXIETY
     Route: 065
     Dates: start: 20120718, end: 20120718
  42. LORAZEPAM [Concomitant]
     Indication: ANXIETY
     Route: 065
     Dates: start: 20120712, end: 20120713
  43. MAGNESIUM [Concomitant]
     Indication: BLOOD MAGNESIUM DECREASED
     Route: 065
     Dates: start: 20120624, end: 20120624
  44. MEROPENEM [Concomitant]
     Indication: INFECTION
     Route: 065
     Dates: start: 20120711, end: 20120810
  45. METARAMINOL [Concomitant]
     Indication: HYPOTENSION
     Route: 065
     Dates: start: 20120731, end: 20120731
  46. METOCLOPRAMIDE [Concomitant]
     Indication: NAUSEA
     Route: 065
     Dates: start: 20120410, end: 20120927
  47. METRONIDAZOLE [Concomitant]
     Indication: INFECTION
     Route: 065
     Dates: start: 20120911, end: 20120920
  48. MIDAZOLAM [Concomitant]
     Indication: ANXIETY
     Route: 065
     Dates: start: 20120731, end: 20120731
  49. NAPROXEN [Concomitant]
     Indication: OSTEOARTHRITIS
     Route: 065
  50. NYSTATIN [Concomitant]
     Indication: ORAL CANDIDIASIS
     Route: 065
     Dates: start: 20120609, end: 20120929
  51. ONDANSETRON [Concomitant]
     Indication: PROPHYLAXIS
     Route: 065
     Dates: start: 20130312
  52. ORAMORPH [Concomitant]
     Indication: PRODUCT USED FOR UNKNOWN INDICATION
     Route: 065
  53. PLATELETS [Concomitant]
     Indication: PLATELET COUNT DECREASED
     Route: 065
     Dates: start: 20120804, end: 20120804
  54. PREDNISOLONE [Concomitant]
     Indication: PRODUCT USED FOR UNKNOWN INDICATION
     Route: 065
     Dates: start: 20120312
  55. QUININE SULFATE [Concomitant]
     Indication: NIGHT SWEATS
     Route: 065
  56. SANDO-K [Concomitant]
     Indication: BLOOD POTASSIUM DECREASED
     Route: 065
     Dates: start: 20120714, end: 20120808
  57. SERTRALINE [Concomitant]
     Indication: DEPRESSION
     Route: 065
  58. SLOW-K [Concomitant]
     Indication: BLOOD POTASSIUM DECREASED
     Route: 065
     Dates: start: 20120808, end: 20120810
  59. TEICOPLANIN [Concomitant]
     Indication: INFECTION
     Route: 065
     Dates: start: 20120624, end: 20120705
  60. VANCOMYCIN [Concomitant]
     Indication: INFECTION
     Route: 065
     Dates: start: 20120705, end: 20120712
  61. VANCOMYCIN [Concomitant]
     Indication: INFECTION
     Route: 065
     Dates: start: 20120705, end: 20120705
  62. FLUCONAZOLE [Concomitant]
     Indication: INFECTION
     Route: 065
     Dates: start: 20120713, end: 20120718
  63. HALOPERIDOL [Concomitant]
     Indication: NAUSEA
     Route: 065
     Dates: start: 20120904, end: 20120926
  64. PARACETAMOL [Concomitant]
     Indication: ARTHRALGIA
     Route: 065
     Dates: start: 20120312
  65. BLOOD WHOLE [Concomitant]
     Indication: ANAEMIA
     Route: 065
     Dates: start: 20120624, end: 20120624

REACTIONS (4)
  - Pulmonary embolism [Recovered/Resolved]
  - Respiratory failure [Recovered/Resolved]
  - Pulmonary cavitation [Recovered/Resolved]
  - Lung infection [Recovered/Resolved]
